FAERS Safety Report 21583092 (Version 1)
Quarter: 2022Q4

REPORT INFORMATION
  Report Type: Spontaneous
  Country: ZA (occurrence: ZA)
  Receive Date: 20221111
  Receipt Date: 20221111
  Transmission Date: 20230113
  Serious: Yes (Hospitalization)
  Sender: FDA-Public Use
  Company Number: ZA-STRIDES ARCOLAB LIMITED-2022SP015000

PATIENT
  Age: 58 Year
  Sex: Female

DRUGS (23)
  1. DEXAMETHASONE [Suspect]
     Active Substance: DEXAMETHASONE
     Indication: Plasma cell myeloma
     Dosage: UNK UNK, CYCLICAL
     Route: 065
     Dates: start: 2002
  2. DEXAMETHASONE [Suspect]
     Active Substance: DEXAMETHASONE
     Dosage: UNK UNK, CYCLICAL;(2ND LINE CTD THERAPY)
     Route: 065
     Dates: start: 201404
  3. DEXAMETHASONE [Suspect]
     Active Substance: DEXAMETHASONE
     Dosage: UNK UNK, CYCLICAL;(4TH LINE IRD THERAPY)
     Route: 065
     Dates: start: 201808
  4. DEXAMETHASONE [Suspect]
     Active Substance: DEXAMETHASONE
     Dosage: UNK UNK, CYCLICAL; (5TH LINE PAD THERAPY)
     Route: 065
     Dates: start: 201904
  5. DEXAMETHASONE [Suspect]
     Active Substance: DEXAMETHASONE
     Dosage: UNK UNK, CYCLICAL;(6TH LINE DCEP THERAPY)
     Route: 065
     Dates: start: 201906
  6. DEXAMETHASONE [Suspect]
     Active Substance: DEXAMETHASONE
     Dosage: UNK UNK, CYCLICAL;(8TH LINE POM/DEX THERAPY)
     Route: 065
     Dates: start: 201912
  7. PREDNISOLONE [Suspect]
     Active Substance: PREDNISOLONE
     Indication: Plasma cell myeloma
     Dosage: UNK, CYCLICAL; (3RD LINE ICD THERAPY)
     Route: 065
     Dates: start: 201705
  8. ETOPOSIDE [Suspect]
     Active Substance: ETOPOSIDE
     Indication: Plasma cell myeloma
     Dosage: UNK UNK, CYCLICAL;(6TH LINE DCEP)
     Route: 065
     Dates: start: 201906
  9. CYCLOPHOSPHAMIDE [Suspect]
     Active Substance: CYCLOPHOSPHAMIDE
     Indication: Plasma cell myeloma
     Dosage: UNK UNK, CYCLICAL;(2ND LINE CTD THERAPY)
     Route: 065
     Dates: start: 201404
  10. CYCLOPHOSPHAMIDE [Suspect]
     Active Substance: CYCLOPHOSPHAMIDE
     Dosage: UNK, CYCLICAL;(3RD LINE ICD)
     Route: 065
     Dates: start: 201705
  11. CYCLOPHOSPHAMIDE [Suspect]
     Active Substance: CYCLOPHOSPHAMIDE
     Dosage: UNK UNK, CYCLICAL; (6TH LINE DCEP THERAPY)
     Route: 065
     Dates: start: 201906
  12. THALIDOMIDE [Suspect]
     Active Substance: THALIDOMIDE
     Indication: Plasma cell myeloma
     Dosage: UNK UNK, CYCLICAL;(SECOND-LINE TREATMENT WITH CTD THERAPY)
     Route: 065
     Dates: start: 201404
  13. IXAZOMIB [Suspect]
     Active Substance: IXAZOMIB
     Indication: Plasma cell myeloma
     Dosage: UNK, CYCLICAL;AS A PART OF ICD REGIMEN
     Route: 065
     Dates: start: 201705
  14. IXAZOMIB [Suspect]
     Active Substance: IXAZOMIB
     Dosage: UNK, CYCLICAL;(4TH LINE IRD THERAPY)
     Route: 065
     Dates: start: 201808
  15. LENALIDOMIDE [Suspect]
     Active Substance: LENALIDOMIDE
     Indication: Plasma cell myeloma
     Dosage: UNK UNK, CYCLICAL; (4TH LINE IRD THERAPY)
     Route: 065
     Dates: start: 201808
  16. BORTEZOMIB [Suspect]
     Active Substance: BORTEZOMIB
     Indication: Plasma cell myeloma
     Dosage: UNK UNK, CYCLICAL;(5TH LINE PAD THERAPY)
     Route: 065
     Dates: start: 201904
  17. DOXORUBICIN [Suspect]
     Active Substance: DOXORUBICIN
     Indication: Plasma cell myeloma
     Dosage: UNK UNK, CYCLICAL; (5TH LINE PAD THERAPY)
     Route: 065
     Dates: start: 201904
  18. DOXORUBICIN [Suspect]
     Active Substance: DOXORUBICIN
     Dosage: UNK, CYCLICAL;(AFTER FIRST-LINE TREATMENT )
     Route: 065
     Dates: start: 2002
  19. CISPLATIN [Suspect]
     Active Substance: CISPLATIN
     Indication: Plasma cell myeloma
     Dosage: UNK UNK, CYCLICAL; (6TH LINE DCEP THERAPY)
     Route: 065
     Dates: start: 201906
  20. BENDAMUSTINE [Suspect]
     Active Substance: BENDAMUSTINE
     Indication: Plasma cell myeloma
     Dosage: UNK (7TH LINE MONTHERAPY)
     Route: 065
     Dates: start: 201910
  21. POMALIDOMIDE [Suspect]
     Active Substance: POMALIDOMIDE
     Indication: Plasma cell myeloma
     Dosage: UNK UNK, CYCLICAL;(8TH LINE POM/DEX THERAPY)
     Route: 065
     Dates: start: 201912
  22. MELPHALAN [Suspect]
     Active Substance: MELPHALAN
     Indication: Bone marrow conditioning regimen
     Dosage: UNK (HIGH DOSE)
     Route: 065
  23. VINCRISTINE [Suspect]
     Active Substance: VINCRISTINE
     Indication: Plasma cell myeloma
     Dosage: UNK (FIRST-LINE TREATMENT)
     Route: 065
     Dates: start: 2002

REACTIONS (3)
  - Bone marrow failure [Recovered/Resolved]
  - Therapy partial responder [Unknown]
  - Off label use [Unknown]
